FAERS Safety Report 19267260 (Version 1)
Quarter: 2021Q2

REPORT INFORMATION
  Report Type: Spontaneous
  Country: US (occurrence: US)
  Receive Date: 20210518
  Receipt Date: 20210518
  Transmission Date: 20210717
  Serious: No
  Sender: FDA-Public Use
  Company Number: US-CELLTRION INC.-2021US002443

PATIENT

DRUGS (2)
  1. TRUXIMA [Suspect]
     Active Substance: RITUXIMAB-ABBS
     Indication: HAIRY CELL LEUKAEMIA
     Dosage: 800 MG, EVERY 7 DAYS
     Dates: start: 20210104
  2. TRUXIMA [Suspect]
     Active Substance: RITUXIMAB-ABBS
     Dosage: 800 MG (LAST DOSE)
     Dates: start: 20210111

REACTIONS (1)
  - Off label use [Unknown]
